FAERS Safety Report 7332949-4 (Version None)
Quarter: 2011Q1

REPORT INFORMATION
  Report Type: 
  Country: None (occurrence: None)
  Receive Date: 20110304
  Receipt Date: 20110228
  Transmission Date: 20110831
  Serious: Yes (Hospitalization, Other)
  Sender: FDA-Public Use
  Company Number: US-PFIZER INC-2011044644

PATIENT
  Sex: Female

DRUGS (2)
  1. NEURONTIN [Suspect]
     Dosage: 600MG, 300MG, 2400MG, 2800MG, 900MG, 100MG
  2. SYNTHROID [Concomitant]
     Dosage: UNK
     Dates: start: 19810101

REACTIONS (2)
  - OSTEOPENIA [None]
  - SUICIDE ATTEMPT [None]
